FAERS Safety Report 24548894 (Version 1)
Quarter: 2024Q4

REPORT INFORMATION
  Report Type: Spontaneous
  Country: US (occurrence: US)
  Receive Date: 20241025
  Receipt Date: 20241025
  Transmission Date: 20250114
  Serious: No
  Sender: BLUEPRINT MEDICINES
  Company Number: US-Blueprint Medicines Corporation-5131

PATIENT
  Sex: Female

DRUGS (2)
  1. AYVAKIT [Suspect]
     Active Substance: AVAPRITINIB
     Indication: Advanced systemic mastocytosis
     Dosage: TOTAL OF 75MG DAILY
     Route: 065
     Dates: start: 20230101
  2. AYVAKIT [Suspect]
     Active Substance: AVAPRITINIB
     Dosage: TOTAL OF 75MG DAILY
     Route: 065
     Dates: start: 20230101

REACTIONS (2)
  - Hair colour changes [Unknown]
  - Fatigue [Unknown]
